FAERS Safety Report 25747649 (Version 5)
Quarter: 2025Q4

REPORT INFORMATION
  Report Type: Report from Study
  Country: EU (occurrence: EU)
  Receive Date: 20250901
  Receipt Date: 20251030
  Transmission Date: 20260118
  Serious: Yes (Hospitalization)
  Sender: ABBVIE
  Company Number: EU-ABBVIE-6436899

PATIENT
  Age: 86 Year
  Sex: Male

DRUGS (4)
  1. FOSCARBIDOPA\FOSLEVODOPA [Suspect]
     Active Substance: FOSCARBIDOPA\FOSLEVODOPA
     Indication: Parkinson^s disease
     Dosage: CRN: 0.24 ML/H, CR: 0.29 ML/H, CRH: 0.31 ML/H, ED: 0.15 ML.?LAST ADMIN DATE: 2025
     Route: 058
     Dates: start: 20250825
  2. FOSCARBIDOPA\FOSLEVODOPA [Suspect]
     Active Substance: FOSCARBIDOPA\FOSLEVODOPA
     Dosage: CRN: 0.22 ML/H, CR: 0.27ML/H, CRH: 0.30ML/H, ED: 0.15ML,?FIRST ADMIN DATE: 2025?LAST ADMIN DATE: ...
     Route: 058
  3. FOSCARBIDOPA\FOSLEVODOPA [Suspect]
     Active Substance: FOSCARBIDOPA\FOSLEVODOPA
     Dosage: CRN: 0.20 ML/H, CR:0.25 ML/H, CRH: 0.28ML/H, ED: 0.15ML.  ?FIRST ADMIN DATE: 2025?LAST ADMIN DATE...
     Route: 058
  4. FOSCARBIDOPA\FOSLEVODOPA [Suspect]
     Active Substance: FOSCARBIDOPA\FOSLEVODOPA
     Dosage: CRN: 0.19 ML/H, CR: 0.27 ML/H, CRH: 0.29 ML/H, ED: 0.15 ML.?FIRST ADMIN DATE: 2025
     Route: 058

REACTIONS (4)
  - Abdominal pain lower [Not Recovered/Not Resolved]
  - On and off phenomenon [Not Recovered/Not Resolved]
  - Infusion site reaction [Not Recovered/Not Resolved]
  - Infusion site abscess [Recovering/Resolving]

NARRATIVE: CASE EVENT DATE: 20250101
